FAERS Safety Report 24390045 (Version 1)
Quarter: 2024Q4

REPORT INFORMATION
  Report Type: Report from Study
  Country: BR (occurrence: BR)
  Receive Date: 20241003
  Receipt Date: 20241003
  Transmission Date: 20250115
  Serious: Yes (Other)
  Sender: JOHNSON AND JOHNSON
  Company Number: BR-JNJFOC-20240970294

PATIENT
  Sex: Female

DRUGS (2)
  1. REMICADE [Suspect]
     Active Substance: INFLIXIMAB
     Indication: Colitis ulcerative
     Dosage: 5 DOSES
     Route: 041
     Dates: start: 202009, end: 2021
  2. REMICADE [Suspect]
     Active Substance: INFLIXIMAB
     Indication: Rheumatoid arthritis

REACTIONS (8)
  - Colitis ulcerative [Not Recovered/Not Resolved]
  - Rheumatoid arthritis [Recovering/Resolving]
  - Diabetes mellitus [Unknown]
  - Lung disorder [Unknown]
  - Cardiac disorder [Unknown]
  - Depression [Not Recovered/Not Resolved]
  - Memory impairment [Unknown]
  - Hypersensitivity [Unknown]
